FAERS Safety Report 5933632-X (Version None)
Quarter: 2008Q4

REPORT INFORMATION
  Report Type: 
  Country: None (occurrence: None)
  Receive Date: 20081027
  Receipt Date: 20081015
  Transmission Date: 20090506
  Serious: Yes (Death, Hospitalization)
  Sender: FDA-Public Use
  Company Number: 2008BI014193

PATIENT
  Age: 38 Year
  Sex: Female

DRUGS (2)
  1. TYSABRI [Suspect]
     Indication: PROGRESSIVE RELAPSING MULTIPLE SCLEROSIS
     Dosage: 300 MG;QM;IV
     Route: 042
     Dates: start: 20071201, end: 20080401
  2. REBIF [Concomitant]

REACTIONS (9)
  - CEREBRAL TOXOPLASMOSIS [None]
  - COMA [None]
  - CONDITION AGGRAVATED [None]
  - DRUG INEFFECTIVE [None]
  - DRUG SPECIFIC ANTIBODY PRESENT [None]
  - INFUSION RELATED REACTION [None]
  - MULTIPLE SCLEROSIS [None]
  - PARADOXICAL DRUG REACTION [None]
  - QUADRIPARESIS [None]
